FAERS Safety Report 4361019-2 (Version None)
Quarter: 2004Q2

REPORT INFORMATION
  Report Type: 
  Country: None (occurrence: None)
  Receive Date: 20040517
  Receipt Date: 20040505
  Transmission Date: 20050107
  Serious: Yes (Hospitalization)
  Sender: FDA-Public Use
  Company Number: ES-JNJFOC-20040500889

PATIENT
  Age: 78 Year
  Sex: Female
  Weight: 65 kg

DRUGS (5)
  1. DURAGESIC [Suspect]
     Indication: OSTEOARTHRITIS
     Dosage: 25 UG/HR, 1 IN 2 DAY, TRANSDERMAL
     Route: 062
     Dates: start: 20031001
  2. SEROXAT (PAROXETINE HYDROCHLORIDE) TABLETS [Suspect]
     Indication: DEPRESSION
     Dosage: 20 MG, 1 IN 1 DAY, ORAL
     Route: 048
     Dates: start: 20030901
  3. CARDURAN NEO (TABLETS) DOXAZOSIN MESILATE [Concomitant]
  4. HYDROSALURETIL (TABLETS) HYROCHLOROTHIAZIDE [Concomitant]
  5. CORALEN (RANITIDINE HYDROCHLORIDE) TABLETS [Concomitant]

REACTIONS (2)
  - DRUG INTERACTION [None]
  - PANCREATITIS [None]
